FAERS Safety Report 17203392 (Version 1)
Quarter: 2019Q4

REPORT INFORMATION
  Report Type: Spontaneous
  Country: SE (occurrence: SE)
  Receive Date: 20191226
  Receipt Date: 20191226
  Transmission Date: 20200122
  Serious: Yes (Disabling)
  Sender: FDA-Public Use
  Company Number: SE-MYLANLABS-2019M1126593

PATIENT
  Age: 36 Year
  Sex: Female

DRUGS (1)
  1. SIDURO 2,5 % GEL [Suspect]
     Active Substance: KETOPROFEN
     Indication: MYOSITIS
     Dosage: UNK UNK, QD(2 UNK, QD )
     Dates: start: 20181214, end: 20181215

REACTIONS (6)
  - Paraesthesia [Recovering/Resolving]
  - Application site wound [Recovering/Resolving]
  - Adverse drug reaction [Recovering/Resolving]
  - Application site discharge [Recovering/Resolving]
  - Application site vesicles [Recovering/Resolving]
  - Application site pain [Recovering/Resolving]

NARRATIVE: CASE EVENT DATE: 20181215
